FAERS Safety Report 7801925-7 (Version None)
Quarter: 2011Q4

REPORT INFORMATION
  Report Type: 
  Country: None (occurrence: None)
  Receive Date: 20111007
  Receipt Date: 20111007
  Transmission Date: 20120403
  Serious: No
  Sender: FDA-Public Use
  Company Number: None

PATIENT
  Age: 40 Year
  Sex: Male
  Weight: 71.1 kg

DRUGS (13)
  1. AMITRIPTYLINE HCL [Suspect]
     Indication: PHANTOM PAIN
     Dosage: 100MG
     Route: 048
     Dates: start: 20110830, end: 20110921
  2. AMITRIPTYLINE HCL [Suspect]
     Indication: DEPRESSION
     Dosage: 100MG
     Route: 048
     Dates: start: 20110830, end: 20110921
  3. CHANTIX [Concomitant]
     Route: 048
  4. PROTONIX [Concomitant]
     Route: 048
  5. TOPROL-XL [Concomitant]
     Route: 048
  6. BACLOFEN [Concomitant]
     Indication: MUSCLE SPASMS
     Dosage: 10MG
     Route: 048
     Dates: start: 20110919, end: 20110921
  7. PENTOXYFYLLINE CR [Concomitant]
     Route: 048
  8. CRESTOR [Concomitant]
     Route: 048
  9. LISINOPRIL [Concomitant]
  10. DILAUDID [Concomitant]
     Route: 042
  11. KLONOPIN [Concomitant]
     Route: 048
  12. COLACE [Concomitant]
     Route: 048
  13. LYRICA [Concomitant]
     Route: 048

REACTIONS (1)
  - AMNESIA [None]
